FAERS Safety Report 11104023 (Version 5)
Quarter: 2015Q3

REPORT INFORMATION
  Report Type: Spontaneous
  Country: JP (occurrence: JP)
  Receive Date: 20150511
  Receipt Date: 20150813
  Transmission Date: 20151125
  Serious: Yes (Life-Threatening, Hospitalization, Other)
  Sender: FDA-Public Use
  Company Number: JP-GLAXOSMITHKLINE-JP2015JPN061384

PATIENT
  Age: 57 Year
  Sex: Male
  Weight: 66 kg

DRUGS (5)
  1. LAMICTAL [Suspect]
     Active Substance: LAMOTRIGINE
     Dosage: 75 MG, BID
     Route: 048
     Dates: start: 201502, end: 20150425
  2. DEPAKENE [Concomitant]
     Active Substance: VALPROIC ACID
     Dosage: UNK
  3. ABILIFY [Concomitant]
     Active Substance: ARIPIPRAZOLE
     Dosage: UNK
  4. LAMICTAL [Suspect]
     Active Substance: LAMOTRIGINE
     Indication: DEPRESSED MOOD
     Dosage: 25 MG, QOD
     Route: 048
     Dates: start: 20150202, end: 201502
  5. LITHIUM CARBONATE. [Concomitant]
     Active Substance: LITHIUM CARBONATE
     Dosage: UNK

REACTIONS (24)
  - Seizure [Recovering/Resolving]
  - Acute kidney injury [Unknown]
  - Liver disorder [Recovered/Resolved]
  - Urinary incontinence [Unknown]
  - Status epilepticus [Unknown]
  - Encephalitis [Unknown]
  - Paralysis [Unknown]
  - CSF cell count increased [Unknown]
  - Rash [Recovered/Resolved]
  - Somnolence [Unknown]
  - Disorientation [Unknown]
  - Generalised erythema [Unknown]
  - Hepatic function abnormal [Unknown]
  - Pruritus generalised [Unknown]
  - Face oedema [Unknown]
  - Transaminases increased [Unknown]
  - Faecal incontinence [Unknown]
  - Human herpesvirus 6 infection [Unknown]
  - Pyrexia [Unknown]
  - Blood creatine phosphokinase increased [Recovered/Resolved]
  - Drug reaction with eosinophilia and systemic symptoms [Recovered/Resolved]
  - Altered state of consciousness [Unknown]
  - Malaise [Unknown]
  - Skin exfoliation [Unknown]

NARRATIVE: CASE EVENT DATE: 20150424
